FAERS Safety Report 5943714-4 (Version None)
Quarter: 2008Q4

REPORT INFORMATION
  Report Type: 
  Country: None (occurrence: None)
  Receive Date: 20081106
  Receipt Date: 20080828
  Transmission Date: 20090506
  Serious: No
  Sender: FDA-Public Use
  Company Number: US-ABBOTT-08P-163-0473117-00

PATIENT
  Sex: Female
  Weight: 52.21 kg

DRUGS (1)
  1. KALETRA [Suspect]
     Indication: HIV INFECTION
     Route: 048
     Dates: start: 20080101

REACTIONS (2)
  - ASTHENIA [None]
  - MUSCLE FATIGUE [None]
